FAERS Safety Report 22236244 (Version 2)
Quarter: 2023Q2

REPORT INFORMATION
  Report Type: Spontaneous
  Country: US (occurrence: US)
  Receive Date: 20230420
  Receipt Date: 20230428
  Transmission Date: 20230722
  Serious: Yes (Other)
  Sender: FDA-Public Use
  Company Number: US-PPDUS-2023ST000514

PATIENT
  Age: 81 Year
  Sex: Female

DRUGS (1)
  1. ORSERDU [Suspect]
     Active Substance: ELACESTRANT
     Indication: Product used for unknown indication
     Route: 048
     Dates: start: 20230319, end: 202304

REACTIONS (6)
  - Ultrasound liver abnormal [Unknown]
  - Hospice care [Unknown]
  - Condition aggravated [Unknown]
  - Nausea [Unknown]
  - Decreased appetite [Unknown]
  - Product dose omission issue [Unknown]
